FAERS Safety Report 5807108-4 (Version None)
Quarter: 2008Q3

REPORT INFORMATION
  Report Type: 
  Country: None (occurrence: None)
  Receive Date: 20080708
  Receipt Date: 20080626
  Transmission Date: 20090109
  Serious: Yes (Hospitalization)
  Sender: FDA-Public Use
  Company Number: 2008JP002967

PATIENT
  Age: 71 Year
  Sex: Female

DRUGS (6)
  1. PROTOPIC [Suspect]
     Indication: DERMATITIS ATOPIC
     Dosage: 0.1 %, TOPICAL
     Route: 061
     Dates: start: 20010704, end: 20080611
  2. MYSER            (DIFLUPREDNATE) OINTMENT [Concomitant]
  3. WHITE PETROLEUM            (PETROLATUM) OINTMENT [Concomitant]
  4. RINDERON VG           (GENTAMICIN SULFATE) LOTION [Concomitant]
  5. ALEISON         (EPINASTINE) TABLET [Concomitant]
  6. STEROID EXTERNAL [Concomitant]

REACTIONS (1)
  - LYMPHOMA [None]
